FAERS Safety Report 8789412 (Version 1)
Quarter: 2012Q4

REPORT INFORMATION
  Report Type: Spontaneous
  Country: US (occurrence: None)
  Receive Date: 20120905
  Receipt Date: 20120905
  Transmission Date: 20130627
  Serious: Yes (Hospitalization)
  Sender: FDA-Public Use
  Company Number: KAD201208-000424

PATIENT
  Age: 57 Year
  Sex: Male

DRUGS (2)
  1. RIBAVIRIN [Suspect]
     Indication: HEPATITIS C
     Route: 048
  2. PEGINTERFERON ALFA-2A [Suspect]
     Indication: HEPATITIS C

REACTIONS (20)
  - Acute prerenal failure [None]
  - Sarcoidosis [None]
  - Nausea [None]
  - Dyspepsia [None]
  - Arthralgia [None]
  - Oedema peripheral [None]
  - Rash [None]
  - Insomnia [None]
  - Vomiting [None]
  - Decreased appetite [None]
  - Weight decreased [None]
  - Hypercalcaemia [None]
  - Hypovolaemia [None]
  - Vitamin D decreased [None]
  - Hypophagia [None]
  - Fatigue [None]
  - Hyperglycaemia [None]
  - Blood phosphorus decreased [None]
  - Blood 1,25-dihydroxycholecalciferol increased [None]
  - Hypercalciuria [None]
